FAERS Safety Report 15648232 (Version 3)
Quarter: 2019Q1

REPORT INFORMATION
  Report Type: Spontaneous
  Country: JP (occurrence: JP)
  Receive Date: 20181122
  Receipt Date: 20190201
  Transmission Date: 20190417
  Serious: Yes (Hospitalization)
  Sender: FDA-Public Use
  Company Number: PHHY2018JP160284

PATIENT
  Age: 75 Year
  Sex: Female

DRUGS (4)
  1. RECLAST [Suspect]
     Active Substance: ZOLEDRONIC ACID
     Indication: OSTEOPOROSIS
     Dosage: 5 MG, ONCE YEARLY
     Route: 041
     Dates: start: 201711
  2. TERIBONE [Suspect]
     Active Substance: TERIPARATIDE ACETATE
     Indication: PRODUCT USED FOR UNKNOWN INDICATION
     Dosage: 56.5 UG, QW
     Route: 058
     Dates: start: 2011
  3. PREDNISOLONE. [Suspect]
     Active Substance: PREDNISOLONE
     Indication: RHEUMATOID ARTHRITIS
     Dosage: 5 MG, Q12MO
     Route: 048
  4. TERIBONE [Suspect]
     Active Substance: TERIPARATIDE ACETATE
     Dosage: 56.5 UG, QW
     Route: 058
     Dates: start: 201808

REACTIONS (3)
  - Compression fracture [Unknown]
  - Nausea [Recovered/Resolved]
  - Decreased appetite [Recovered/Resolved]

NARRATIVE: CASE EVENT DATE: 2011
